FAERS Safety Report 6974008-6 (Version None)
Quarter: 2010Q3

REPORT INFORMATION
  Report Type: 
  Country: None (occurrence: None)
  Receive Date: 20100909
  Receipt Date: 20100830
  Transmission Date: 20110219
  Serious: Yes (Hospitalization)
  Sender: FDA-Public Use
  Company Number: US-WYE-H17208310

PATIENT
  Sex: Female

DRUGS (2)
  1. EFFEXOR XR [Suspect]
  2. EFFEXOR XR [Suspect]

REACTIONS (3)
  - DRUG WITHDRAWAL SYNDROME [None]
  - MANIA [None]
  - PSYCHOTIC DISORDER [None]
